FAERS Safety Report 7252134-4 (Version None)
Quarter: 2011Q1

REPORT INFORMATION
  Report Type: 
  Country: None (occurrence: None)
  Receive Date: 20110128
  Receipt Date: 20100429
  Transmission Date: 20110831
  Serious: No
  Sender: FDA-Public Use
  Company Number: US-ABBOTT-10P-163-0642274-00

PATIENT
  Sex: Female
  Weight: 120.31 kg

DRUGS (6)
  1. HUMIRA [Suspect]
  2. COREG [Suspect]
     Indication: HYPERTENSION
  3. HUMIRA [Suspect]
     Dates: start: 20100401
  4. HUMIRA [Suspect]
     Dates: start: 20100301, end: 20100301
  5. FLUOXETINE [Concomitant]
     Indication: DEPRESSION
  6. HUMIRA [Suspect]
     Dates: start: 20100301, end: 20100301

REACTIONS (3)
  - PAIN [None]
  - DRUG INEFFECTIVE [None]
  - DERMATITIS PSORIASIFORM [None]
